FAERS Safety Report 6037151-4 (Version None)
Quarter: 2009Q1

REPORT INFORMATION
  Report Type: 
  Country: None (occurrence: None)
  Receive Date: 20090114
  Receipt Date: 20090103
  Transmission Date: 20090719
  Serious: Yes (Death)
  Sender: FDA-Public Use
  Company Number: DE-ROCHE-606119

PATIENT
  Sex: Male
  Weight: 87 kg

DRUGS (3)
  1. PEG-INTERFERON A-2A (RO 25-8310) [Suspect]
     Route: 058
     Dates: start: 20080429, end: 20081205
  2. RIBAVIRIN [Suspect]
     Route: 048
     Dates: start: 20080429, end: 20081205
  3. METHADON [Concomitant]
     Indication: DRUG WITHDRAWAL MAINTENANCE THERAPY
     Route: 048
     Dates: start: 20070607, end: 20081206

REACTIONS (1)
  - PULMONARY EMBOLISM [None]
